FAERS Safety Report 8614618 (Version 2)
Quarter: 2012Q4

REPORT INFORMATION
  Report Type: Spontaneous
  Country: US (occurrence: None)
  Receive Date: 20120531
  Receipt Date: 20120905
  Transmission Date: 20130627
  Serious: Yes (Hospitalization, Other)
  Sender: FDA-Public Use
  Company Number: 2012S1000597

PATIENT
  Age: 72 Year
  Sex: Female
  Weight: 65.77 kg

DRUGS (4)
  1. LIVALO [Suspect]
     Indication: BLOOD CHOLESTEROL INCREASED
     Route: 048
     Dates: start: 201112, end: 20120101
  2. LIVALO [Suspect]
     Indication: BLOOD CHOLESTEROL INCREASED
     Route: 048
     Dates: start: 201201, end: 20120408
  3. FISH OIL [Concomitant]
  4. LEVOTHYROXINE SODIUM [Concomitant]

REACTIONS (4)
  - Aspartate aminotransferase increased [None]
  - Cold sweat [None]
  - Hepatic pain [None]
  - Alanine aminotransferase increased [None]
